FAERS Safety Report 8170273-0 (Version None)
Quarter: 2012Q1

REPORT INFORMATION
  Report Type: 
  Country: None (occurrence: None)
  Receive Date: 20120106
  Receipt Date: 20110504
  Transmission Date: 20120608
  Serious: Yes (Life-Threatening, Hospitalization)
  Sender: FDA-Public Use
  Company Number: 116730

PATIENT
  Age: 57 Year
  Sex: Male
  Weight: 68.0396 kg

DRUGS (2)
  1. CISPLATIN [Suspect]
     Indication: RENAL CANCER
     Dosage: UNKNOWN/MONTHLY/IV
     Route: 042
     Dates: start: 20100801, end: 20110228
  2. GEMZAR [Concomitant]

REACTIONS (3)
  - VENTRICULAR TACHYCARDIA [None]
  - CARDIOMYOPATHY [None]
  - DYSPNOEA [None]
